FAERS Safety Report 4643034-4 (Version None)
Quarter: 2005Q2

REPORT INFORMATION
  Report Type: 
  Country: None (occurrence: None)
  Receive Date: 20050421
  Receipt Date: 20050408
  Transmission Date: 20051028
  Serious: Yes (Hospitalization)
  Sender: FDA-Public Use
  Company Number: 2005057235

PATIENT
  Age: 72 Year
  Sex: Female

DRUGS (2)
  1. AROMASIN [Suspect]
     Indication: BREAST CANCER
     Dosage: ORAL
     Route: 048
     Dates: start: 20050214
  2. PHENPROCOUMON (PHENPROCOUMON) [Concomitant]

REACTIONS (1)
  - CEREBRAL HAEMORRHAGE [None]
